FAERS Safety Report 9550081 (Version 8)
Quarter: 2014Q2

REPORT INFORMATION
  Report Type: Report from Study
  Country: FR (occurrence: FR)
  Receive Date: 20130924
  Receipt Date: 20140602
  Transmission Date: 20141212
  Serious: Yes (Hospitalization)
  Sender: FDA-Public Use
  Company Number: FR-ROCHE-1277036

PATIENT
  Age: 62 Year
  Sex: Female

DRUGS (6)
  1. PEG-INTERFERON ALFA 2A [Suspect]
     Indication: HEPATITIS C
     Route: 058
     Dates: start: 20130424, end: 20131018
  2. RIBAVIRIN [Suspect]
     Indication: HEPATITIS C
     Route: 048
     Dates: start: 20130424, end: 20131018
  3. ASUNAPREVIR [Suspect]
     Indication: HEPATITIS C
     Route: 048
     Dates: start: 20130523, end: 20131018
  4. DACLATASVIR [Suspect]
     Indication: HEPATITIS C
     Route: 048
     Dates: start: 20130523, end: 20131018
  5. TRUVADA [Suspect]
     Indication: HIV INFECTION
     Route: 048
     Dates: start: 20121002, end: 20130830
  6. ISENTRESS [Concomitant]
     Route: 065
     Dates: start: 20100915, end: 20130830

REACTIONS (4)
  - Interstitial lung disease [Recovered/Resolved]
  - Staphylococcal bacteraemia [Recovering/Resolving]
  - Intervertebral discitis [Recovering/Resolving]
  - Renal failure [Recovered/Resolved]
